FAERS Safety Report 7340502 (Version 5)
Quarter: 2013Q3

REPORT INFORMATION
  Report Type: Spontaneous
  Country: US (occurrence: US)
  Receive Date: 20100401
  Receipt Date: 20130812
  Transmission Date: 20140515
  Serious: Yes (Hospitalization, Other)
  Sender: FDA-Public Use
  Company Number: US-BAYER-201018144NA

PATIENT
  Age: 39 Year
  Sex: Female
  Weight: 78 kg

DRUGS (28)
  1. YASMIN [Suspect]
     Dosage: UNK UNK, UNK
     Route: 048
     Dates: start: 2000
  2. YASMIN [Suspect]
     Dosage: UNK
     Dates: start: 20031030, end: 20031231
  3. VITAMIN C [ASCORBIC ACID] [Concomitant]
  4. PAXIL [Concomitant]
     Indication: ANXIETY
     Dosage: 40 MG, QD
     Route: 048
     Dates: start: 1996
  5. PAXIL [Concomitant]
     Indication: ANXIETY
     Dosage: 37.5
  6. XANAX [Concomitant]
     Indication: ANXIETY
     Dosage: 0.25 MG, BID
     Route: 048
     Dates: start: 1996
  7. NEXIUM [Concomitant]
     Dosage: 40 MG, UNK
     Dates: start: 2002
  8. ZELNORM [Concomitant]
     Dosage: 6 MG, UNK
  9. GUAIFEN-C [Concomitant]
  10. PRILOSEC [Concomitant]
     Dosage: UNK
     Dates: start: 2001
  11. NORETHINDRONE [Concomitant]
     Dosage: 5 MG, UNK
     Dates: start: 20070309
  12. MICROGESTIN [Concomitant]
     Dosage: UNK
     Dates: start: 20090128, end: 20090626
  13. ASA [Concomitant]
     Dosage: 81 MG, UNK
     Route: 048
  14. MIRALAX [Concomitant]
     Dosage: 17 G, QD
     Route: 048
  15. MIRALAX [Concomitant]
     Dosage: 527 G, UNK
  16. PROTONIX [Concomitant]
     Indication: DYSPEPSIA
     Dosage: 40 MG, QD
     Route: 048
  17. AMBIEN [Concomitant]
     Indication: SLEEP DISORDER THERAPY
     Dosage: 10 MG, HS
     Route: 048
  18. LOESTRIN [Concomitant]
     Dosage: UNK
     Route: 048
  19. DOXYCYCLINE [Concomitant]
     Dosage: 100 MG, UNK
     Route: 048
     Dates: start: 20040310
  20. ZITHROMAX [Concomitant]
     Dosage: 250 MG, UNK
     Route: 048
     Dates: start: 20040323
  21. HYOSCYAMINE [Concomitant]
     Dosage: 0.125 MG, UNK
     Route: 048
     Dates: start: 20040420
  22. VALTREX [Concomitant]
     Dosage: 1 G, UNK
     Route: 048
  23. INDOCIN [Concomitant]
     Dosage: 25 MG, UNK
  24. DIFLUCAN [Concomitant]
     Dosage: 150 MG, UNK
  25. ALPRAZOLAM [Concomitant]
     Dosage: 0.25 MG, UNK
  26. PAROXETINE [Concomitant]
     Dosage: 40 MG, UNK
  27. GUAIFENESIN PSE [Concomitant]
  28. PROPOXYPHENE NAPSYLATE W/ACETAMINOPHENE [Concomitant]
     Dosage: 100/650 MG

REACTIONS (9)
  - Deep vein thrombosis [Recovered/Resolved]
  - Thrombosis [Recovered/Resolved]
  - Biliary dyskinesia [None]
  - Abdominal pain lower [None]
  - Haemorrhoids [None]
  - Cholecystitis [None]
  - Pain in extremity [Recovered/Resolved]
  - Abdominal distension [None]
  - Pain in extremity [Recovered/Resolved]
